FAERS Safety Report 9325659 (Version 1)
Quarter: 2013Q2

REPORT INFORMATION
  Report Type: Spontaneous
  Country: US (occurrence: None)
  Receive Date: 20130531
  Receipt Date: 20130531
  Transmission Date: 20140414
  Serious: Yes (Hospitalization)
  Sender: FDA-Public Use
  Company Number: None

PATIENT
  Age: 10 Year
  Sex: Female
  Weight: 34 kg

DRUGS (6)
  1. PEG-L-ASPARAGINASE [Suspect]
     Dates: end: 20130506
  2. PREDNISONE [Suspect]
     Dates: end: 20130530
  3. VINCRISTINE SULFATE [Suspect]
     Dates: end: 20130524
  4. CYTARABINE [Suspect]
     Dates: end: 20130503
  5. DAUNORUBICIN [Suspect]
     Dates: end: 20130524
  6. METHOTREXATE [Suspect]
     Dates: end: 20130510

REACTIONS (6)
  - Headache [None]
  - Malaise [None]
  - Nausea [None]
  - Superior sagittal sinus thrombosis [None]
  - Transverse sinus thrombosis [None]
  - Thrombosis [None]
